FAERS Safety Report 6743301-4 (Version None)
Quarter: 2010Q2

REPORT INFORMATION
  Report Type: 
  Country: None (occurrence: None)
  Receive Date: 20100527
  Receipt Date: 20100517
  Transmission Date: 20101027
  Serious: Yes (Other)
  Sender: FDA-Public Use
  Company Number: US-MYLANLABS-2010S1008767

PATIENT
  Age: 18 Year
  Sex: Male
  Weight: 79.38 kg

DRUGS (2)
  1. AMNESTEEM [Suspect]
     Indication: ACNE
     Route: 048
     Dates: start: 20091001, end: 20100401
  2. AMNESTEEM [Suspect]
     Route: 048
     Dates: start: 20100401, end: 20100513

REACTIONS (4)
  - DIARRHOEA [None]
  - HAEMATOCHEZIA [None]
  - PROCTALGIA [None]
  - RECTAL HAEMORRHAGE [None]
